FAERS Safety Report 5050676-3 (Version None)
Quarter: 2006Q3

REPORT INFORMATION
  Report Type: 
  Country: None (occurrence: None)
  Receive Date: 20060710
  Receipt Date: 20060703
  Transmission Date: 20061208
  Serious: Yes (Hospitalization)
  Sender: FDA-Public Use
  Company Number: 2006-07-0017

PATIENT
  Sex: Male

DRUGS (1)
  1. RIBAVIRIN [Suspect]

REACTIONS (1)
  - RETINITIS [None]
